FAERS Safety Report 7972990-1 (Version None)
Quarter: 2011Q4

REPORT INFORMATION
  Report Type: 
  Country: None (occurrence: None)
  Receive Date: 20111213
  Receipt Date: 20111208
  Transmission Date: 20120403
  Serious: Yes (Other)
  Sender: FDA-Public Use
  Company Number: JP-PFIZER INC-2011287735

PATIENT
  Age: 38 Year
  Sex: Female

DRUGS (2)
  1. PROVERA [Suspect]
     Indication: ASSISTED FERTILISATION
  2. PROVERA [Suspect]
     Indication: OFF LABEL USE
     Dosage: 1 DF, 2X/DAY
     Route: 048
     Dates: start: 20111121

REACTIONS (3)
  - THROMBOSIS [None]
  - VISUAL IMPAIRMENT [None]
  - PAIN IN EXTREMITY [None]
